FAERS Safety Report 17246819 (Version 1)
Quarter: 2020Q1

REPORT INFORMATION
  Report Type: Spontaneous
  Country: CO (occurrence: CO)
  Receive Date: 20200108
  Receipt Date: 20200108
  Transmission Date: 20200409
  Serious: Yes (Death)
  Sender: FDA-Public Use
  Company Number: CO-PFIZER INC-2020002232

PATIENT
  Age: 42 Year
  Sex: Male

DRUGS (4)
  1. AMPHOTERICIN B DEOXYCHOLATE [Suspect]
     Active Substance: AMPHOTERICIN B
     Indication: TRICHOSPORON INFECTION
     Dosage: 1 MG/KG, UNK
  2. CASPOFUNGIN [Suspect]
     Active Substance: CASPOFUNGIN
     Dosage: 50 MG, DAILY (50 MG/D FOR MAINTENANCE DOSAGE)
  3. VORICONAZOLE. [Suspect]
     Active Substance: VORICONAZOLE
     Indication: BRONCHOPULMONARY ASPERGILLOSIS
     Dosage: 200 MG, 2X/DAY (VCZ, 200 MG IV, BID)
  4. CASPOFUNGIN [Suspect]
     Active Substance: CASPOFUNGIN
     Indication: BRONCHOPULMONARY ASPERGILLOSIS
     Dosage: 70 MG, DAILY (70 MG/D FOR LOADING DOSAGE ON THE FIRST DAY)

REACTIONS (2)
  - Fungaemia [Fatal]
  - Pathogen resistance [Fatal]
